FAERS Safety Report 4678409-0 (Version None)
Quarter: 2005Q2

REPORT INFORMATION
  Report Type: 
  Country: None (occurrence: None)
  Receive Date: 20050525
  Receipt Date: 20050509
  Transmission Date: 20051028
  Serious: Yes (Life-Threatening, Hospitalization, Disabling)
  Sender: FDA-Public Use
  Company Number: 142183USA

PATIENT
  Age: 59 Year
  Sex: Male
  Weight: 89.3586 kg

DRUGS (1)
  1. NAPROXEN [Suspect]
     Indication: ARTHRALGIA
     Dosage: 500 MILLIGRAM BID ORAL
     Route: 048
     Dates: start: 20030721, end: 20030716

REACTIONS (2)
  - HAEMORRHAGIC STROKE [None]
  - PULMONARY EMBOLISM [None]
